FAERS Safety Report 4961518-6 (Version None)
Quarter: 2006Q1

REPORT INFORMATION
  Report Type: 
  Country: None (occurrence: None)
  Receive Date: 20060201
  Receipt Date: 20051031
  Transmission Date: 20060701
  Serious: No
  Sender: FDA-Public Use
  Company Number: 2005PV003919

PATIENT
  Age: 74 Year
  Sex: Male
  Weight: 141.5223 kg

DRUGS (6)
  1. BYETTA [Suspect]
     Indication: DIABETES MELLITUS NON-INSULIN-DEPENDENT
     Dosage: 5 MCG; BID; SC
     Route: 058
     Dates: start: 20051025
  2. ACTOS [Concomitant]
  3. AMARYL [Concomitant]
  4. CELEBREX [Concomitant]
  5. TYLENOL [Concomitant]
  6. ASPIRIN [Concomitant]

REACTIONS (1)
  - MYALGIA [None]
